FAERS Safety Report 12244347 (Version 2)
Quarter: 2023Q4

REPORT INFORMATION
  Report Type: Report from Study
  Country: US (occurrence: US)
  Receive Date: 20160407
  Receipt Date: 20231028
  Transmission Date: 20240109
  Serious: Yes (Other)
  Sender: FDA-Public Use
  Company Number: US-AMGEN-USASL2016041252

PATIENT
  Age: 56 Year
  Sex: Female

DRUGS (1)
  1. ENBREL [Suspect]
     Active Substance: ETANERCEPT
     Indication: Rheumatoid arthritis
     Dosage: UNK, QWK
     Route: 065
     Dates: start: 20000601

REACTIONS (6)
  - Pancreatic carcinoma [Unknown]
  - Rheumatoid arthritis [Not Recovered/Not Resolved]
  - Systemic lupus erythematosus [Unknown]
  - Neoplasm malignant [Unknown]
  - Raynaud^s phenomenon [Unknown]
  - Chronic obstructive pulmonary disease [Unknown]
